FAERS Safety Report 13427155 (Version 1)
Quarter: 2017Q2

REPORT INFORMATION
  Report Type: Spontaneous
  Country: US (occurrence: US)
  Receive Date: 20170411
  Receipt Date: 20170411
  Transmission Date: 20170830
  Serious: Yes (Other)
  Sender: FDA-Public Use
  Company Number: ALCN2017US002617

PATIENT
  Sex: Female

DRUGS (1)
  1. ICAPS MV [Suspect]
     Active Substance: MINERALS\VITAMINS
     Indication: SUPPLEMENTATION THERAPY
     Dosage: 1 DF, BID
     Route: 048
     Dates: start: 20170329, end: 20170330

REACTIONS (1)
  - Intestinal obstruction [Recovered/Resolved]

NARRATIVE: CASE EVENT DATE: 20170330
